FAERS Safety Report 12571054 (Version 4)
Quarter: 2025Q3

REPORT INFORMATION
  Report Type: Spontaneous
  Country: BR (occurrence: BR)
  Receive Date: 20160719
  Receipt Date: 20250822
  Transmission Date: 20251020
  Serious: Yes (Death, Other)
  Sender: SANOFI AVENTIS
  Company Number: BR-SA-2016SA130161

PATIENT
  Age: 19 Year
  Sex: Female

DRUGS (12)
  1. METHYLPREDNISOLONE HEMISUCCINATE [Suspect]
     Active Substance: METHYLPREDNISOLONE HEMISUCCINATE
     Indication: Systemic lupus erythematosus
     Dosage: 1 G,QD
     Route: 042
  2. METHYLPREDNISOLONE HEMISUCCINATE [Suspect]
     Active Substance: METHYLPREDNISOLONE HEMISUCCINATE
     Indication: Lupus nephritis
  3. PREDNISONE [Suspect]
     Active Substance: PREDNISONE
     Indication: Systemic lupus erythematosus
     Dosage: 60 MG,QD
  4. PREDNISONE [Suspect]
     Active Substance: PREDNISONE
     Indication: Lupus nephritis
     Dosage: 30 MG,QD
  5. CHLOROQUINE [Suspect]
     Active Substance: CHLOROQUINE
     Indication: Systemic lupus erythematosus
     Dosage: 250 MG,QD
  6. CHLOROQUINE [Suspect]
     Active Substance: CHLOROQUINE
     Indication: Lupus nephritis
  7. CYCLOPHOSPHAMIDE [Suspect]
     Active Substance: CYCLOPHOSPHAMIDE
     Indication: Systemic lupus erythematosus
     Dosage: 0.5?1.0 G/M2,QM
     Route: 042
  8. CYCLOPHOSPHAMIDE [Suspect]
     Active Substance: CYCLOPHOSPHAMIDE
     Indication: Lupus nephritis
     Dosage: UNK, Q3M
     Route: 042
  9. AZATHIOPRINE [Suspect]
     Active Substance: AZATHIOPRINE
     Indication: Systemic lupus erythematosus
     Dosage: 100 MG,QD
  10. AZATHIOPRINE [Suspect]
     Active Substance: AZATHIOPRINE
     Indication: Lupus nephritis
  11. ALENDRONATE [Concomitant]
     Active Substance: ALENDRONATE SODIUM
  12. CALCITONIN [Concomitant]
     Active Substance: CALCITONIN

REACTIONS (9)
  - Disseminated tuberculosis [Fatal]
  - Cough [Fatal]
  - Confusional state [Fatal]
  - Headache [Fatal]
  - Pulmonary granuloma [Fatal]
  - Pulmonary alveolar haemorrhage [Fatal]
  - Lung infiltration [Fatal]
  - Sepsis [Fatal]
  - Pneumonia [Fatal]
